FAERS Safety Report 22228813 (Version 1)
Quarter: 2023Q2

REPORT INFORMATION
  Report Type: Spontaneous
  Country: CN (occurrence: CN)
  Receive Date: 20230419
  Receipt Date: 20230419
  Transmission Date: 20230721
  Serious: Yes (Hospitalization)
  Sender: FDA-Public Use
  Company Number: CN-SA-SAC20230418000448

PATIENT
  Age: 84 Year
  Sex: Female

DRUGS (3)
  1. ENOXAPARIN SODIUM [Suspect]
     Active Substance: ENOXAPARIN SODIUM
     Indication: Symptomatic treatment
     Dosage: 4000 IU, BID
     Route: 058
     Dates: start: 20230315, end: 20230327
  2. CEFOPERAZONE SODIUM\SULBACTAM SODIUM [Suspect]
     Active Substance: CEFOPERAZONE SODIUM\SULBACTAM SODIUM
     Indication: Symptomatic treatment
     Dosage: 3.0 G TID
     Route: 041
     Dates: start: 20230315, end: 20230327
  3. PENTOXIFYLLINE [Concomitant]
     Active Substance: PENTOXIFYLLINE
     Indication: Symptomatic treatment
     Dosage: 0.40 G QD
     Route: 048
     Dates: start: 20230314, end: 20230329

REACTIONS (4)
  - Coagulopathy [Recovering/Resolving]
  - Prothrombin time prolonged [Recovering/Resolving]
  - Thrombin time prolonged [Recovering/Resolving]
  - International normalised ratio increased [Recovering/Resolving]

NARRATIVE: CASE EVENT DATE: 20230327
